FAERS Safety Report 11800839 (Version 1)
Quarter: 2015Q4

REPORT INFORMATION
  Report Type: Spontaneous
  Country: US (occurrence: US)
  Receive Date: 20151204
  Receipt Date: 20151204
  Transmission Date: 20160305
  Serious: No
  Sender: FDA-Public Use
  Company Number: US-THE MEDICINES COMPANY-US-MDCO-15-00468

PATIENT
  Sex: Female

DRUGS (1)
  1. ORBACTIV [Suspect]
     Active Substance: ORITAVANCIN
     Indication: SKIN BACTERIAL INFECTION
     Route: 041

REACTIONS (4)
  - Pruritus [Recovered/Resolved]
  - Flushing [Recovered/Resolved]
  - Peripheral swelling [Recovered/Resolved]
  - Eye swelling [Recovered/Resolved]
